FAERS Safety Report 4589398-1 (Version None)
Quarter: 2005Q1

REPORT INFORMATION
  Report Type: 
  Country: None (occurrence: None)
  Receive Date: 20050216
  Receipt Date: 20050202
  Transmission Date: 20050727
  Serious: Yes (Hospitalization)
  Sender: FDA-Public Use
  Company Number: 2004-BP-05145NB

PATIENT
  Age: 56 Year
  Sex: Male

DRUGS (5)
  1. PERSANTIN-L           (DIPYRIDAMOLE) [Suspect]
     Indication: THROMBOSIS PROPHYLAXIS
     Dosage: 150 MG (150 MG)
     Route: 048
     Dates: start: 20040423, end: 20040615
  2. FAMOTIDINE [Suspect]
     Indication: GASTRITIS
     Dosage: 10 MG
     Route: 048
     Dates: start: 20040416, end: 20040615
  3. BLOPRESS             (CANDESARTAN CILEXETIL) [Suspect]
     Indication: HYPERTENSION
     Dosage: 2 MG
     Route: 048
     Dates: start: 20040416, end: 20040615
  4. RYTHMODAN               (DISOPYRAMIDE) (KAP) [Suspect]
     Indication: ARRHYTHMIA
     Dosage: 300 MG
     Route: 048
     Dates: start: 20040423, end: 20040615
  5. WARFARIN SODIUM [Concomitant]

REACTIONS (4)
  - HAEMODIALYSIS [None]
  - HAEMORRHAGIC DIATHESIS [None]
  - HEPATITIS FULMINANT [None]
  - LIVER TRANSPLANT [None]
